FAERS Safety Report 7889882-9 (Version None)
Quarter: 2011Q4

REPORT INFORMATION
  Report Type: 
  Country: None (occurrence: None)
  Receive Date: 20111103
  Receipt Date: 20111024
  Transmission Date: 20120403
  Serious: Yes (Hospitalization)
  Sender: FDA-Public Use
  Company Number: US-GLAXOSMITHKLINE-B0756518A

PATIENT
  Sex: Male
  Weight: 115 kg

DRUGS (6)
  1. XANAX [Concomitant]
  2. AVANDIA [Suspect]
     Indication: DIABETES MELLITUS
     Dosage: 4MG PER DAY
     Route: 048
     Dates: end: 20100422
  3. LEXAPRO [Concomitant]
  4. METFORMIN HCL [Concomitant]
  5. ATACAND [Concomitant]
  6. AVANDAMET [Suspect]
     Indication: DIABETES MELLITUS
     Route: 048

REACTIONS (9)
  - PANCREATITIS [None]
  - HEPATIC STEATOSIS [None]
  - CEREBROVASCULAR ACCIDENT [None]
  - LIVER INJURY [None]
  - BLINDNESS [None]
  - PANCREATIC CALCIFICATION [None]
  - CONVULSION [None]
  - MACULAR DEGENERATION [None]
  - HYPERLIPIDAEMIA [None]
